FAERS Safety Report 15896854 (Version 1)
Quarter: 2019Q1

REPORT INFORMATION
  Report Type: Spontaneous
  Country: CN (occurrence: CN)
  Receive Date: 20190131
  Receipt Date: 20190131
  Transmission Date: 20190417
  Serious: Yes (Hospitalization)
  Sender: FDA-Public Use
  Company Number: CN-NOVOPROD-643767

PATIENT
  Age: 85 Year
  Sex: Male
  Weight: 70 kg

DRUGS (2)
  1. NOVOLIN [Suspect]
     Active Substance: INSULIN HUMAN
     Indication: DIABETES MELLITUS
     Dosage: 30 IU, QD (14 IU IN THE MORNING AND 16 IU IN THE EVENING)
     Route: 058
     Dates: start: 20170710
  2. NOVOLIN [Suspect]
     Active Substance: INSULIN HUMAN
     Dosage: 10  IU BID (10 U IN THE MORNING AND 10 U IN THE EVENING)
     Route: 058
     Dates: start: 20190102

REACTIONS (3)
  - Altered state of consciousness [Recovering/Resolving]
  - Hypoglycaemia [Recovering/Resolving]
  - Discomfort [Recovering/Resolving]

NARRATIVE: CASE EVENT DATE: 20190101
